FAERS Safety Report 8059328-9 (Version None)
Quarter: 2012Q1

REPORT INFORMATION
  Report Type: 
  Country: None (occurrence: None)
  Receive Date: 20120120
  Receipt Date: 20120116
  Transmission Date: 20120608
  Serious: Yes (Other)
  Sender: FDA-Public Use
  Company Number: BR-ABBOTT-11P-020-0721690-00

PATIENT
  Sex: Female
  Weight: 70 kg

DRUGS (6)
  1. CALCORT [Concomitant]
     Indication: RHEUMATOID ARTHRITIS
     Route: 048
  2. OSTEOFORM [Concomitant]
     Indication: PROPHYLAXIS
  3. OSTEOFORM [Concomitant]
     Indication: BONE DISORDER
     Route: 048
  4. OSCAL D [Concomitant]
     Indication: BONE DISORDER
     Dosage: CALCIUM 500 MG + VIT D 250 IU WEEKLY
     Route: 048
  5. OSCAL D [Concomitant]
     Indication: PROPHYLAXIS
  6. HUMIRA [Suspect]
     Indication: RHEUMATOID ARTHRITIS
     Route: 058
     Dates: start: 20080201, end: 20110201

REACTIONS (14)
  - DRUG INEFFECTIVE [None]
  - CARDIAC DISORDER [None]
  - INSOMNIA [None]
  - OEDEMA PERIPHERAL [None]
  - PAIN [None]
  - ANGINA PECTORIS [None]
  - FEELING ABNORMAL [None]
  - BLOOD TRIGLYCERIDES INCREASED [None]
  - BONE EROSION [None]
  - BLOOD CHOLESTEROL INCREASED [None]
  - GAIT DISTURBANCE [None]
  - HYPERTENSION [None]
  - OSTEOPOROSIS [None]
  - CARDIAC VALVE DISEASE [None]
